FAERS Safety Report 23925563 (Version 1)
Quarter: 2024Q2

REPORT INFORMATION
  Report Type: Spontaneous
  Country: TR (occurrence: TR)
  Receive Date: 20240531
  Receipt Date: 20240531
  Transmission Date: 20240716
  Serious: Yes (Other)
  Sender: FDA-Public Use
  Company Number: TR-002147023-NVSC2024TR114128

PATIENT
  Age: 23 Year
  Sex: Female

DRUGS (1)
  1. ILARIS [Suspect]
     Active Substance: CANAKINUMAB
     Indication: Familial mediterranean fever
     Dosage: UNK, Q2MO (1X1)
     Route: 065

REACTIONS (3)
  - Familial mediterranean fever [Unknown]
  - Product supply issue [Unknown]
  - Product dose omission issue [Unknown]
